FAERS Safety Report 6012537-2 (Version None)
Quarter: 2008Q4

REPORT INFORMATION
  Report Type: 
  Country: None (occurrence: None)
  Receive Date: 20081218
  Receipt Date: 20081211
  Transmission Date: 20090506
  Serious: Yes (Hospitalization)
  Sender: FDA-Public Use
  Company Number: FR-B.I. PHARMACEUTICALS,INC./RIDGEFIELD-2008-FF-00672FF

PATIENT
  Sex: Male
  Weight: 74 kg

DRUGS (8)
  1. APTIVUS [Suspect]
     Indication: HIV INFECTION
     Dosage: TPV/RTV 500/200MG
     Route: 048
     Dates: start: 20030625, end: 20080130
  2. DIPROSALIC [Concomitant]
     Indication: HYPERKERATOSIS
     Route: 061
     Dates: start: 20070118, end: 20080411
  3. IMODIUM [Concomitant]
     Indication: DIARRHOEA
     Route: 048
     Dates: end: 20080411
  4. ZELITREX [Concomitant]
     Indication: HERPES VIRUS INFECTION
     Route: 048
  5. CRESTOR [Concomitant]
     Indication: DYSLIPIDAEMIA
     Dosage: 10MG
     Route: 048
     Dates: end: 20080411
  6. LAMISIL [Concomitant]
     Indication: ONYCHOMYCOSIS
     Dosage: 250MG
     Route: 048
     Dates: start: 20080131, end: 20080627
  7. VIDEX [Concomitant]
     Indication: HIV INFECTION
     Dosage: 250MG
     Route: 048
     Dates: start: 20030708
  8. KIVEXA [Concomitant]
     Indication: HIV INFECTION
     Dosage: ONE DAILY
     Route: 048
     Dates: start: 20060202

REACTIONS (2)
  - CHOLECYSTITIS [None]
  - GALLBLADDER DISORDER [None]
